FAERS Safety Report 7310900-0 (Version None)
Quarter: 2011Q1

REPORT INFORMATION
  Report Type: 
  Country: None (occurrence: None)
  Receive Date: 20110224
  Receipt Date: 20110215
  Transmission Date: 20110831
  Serious: No
  Sender: FDA-Public Use
  Company Number: US-JNJFOC-20110204896

PATIENT
  Sex: Female
  Weight: 71.67 kg

DRUGS (3)
  1. DURAGESIC-50 [Suspect]
     Route: 062
  2. LYRICA [Concomitant]
     Route: 065
  3. DURAGESIC-50 [Suspect]
     Indication: BACK PAIN
     Route: 062

REACTIONS (1)
  - DRUG ADMINISTERED AT INAPPROPRIATE SITE [None]
